FAERS Safety Report 10713255 (Version 1)
Quarter: 2015Q1

REPORT INFORMATION
  Report Type: Spontaneous
  Country: US (occurrence: None)
  Receive Date: 20150114
  Receipt Date: 20150114
  Transmission Date: 20150721
  Serious: Yes (Disabling, Other)
  Sender: FDA-Public Use
  Company Number: None

PATIENT
  Age: 59 Year
  Sex: Female
  Weight: 69.4 kg

DRUGS (2)
  1. ADVIL [Suspect]
     Active Substance: IBUPROFEN
     Indication: PAIN
     Dosage: 1-2 PILLS AS NEEDED TAKEN BY MOUTH
     Route: 048
     Dates: start: 20141226, end: 20150112
  2. ADVIL [Suspect]
     Active Substance: IBUPROFEN
     Indication: KNEE ARTHROPLASTY
     Dosage: 1-2 PILLS AS NEEDED TAKEN BY MOUTH
     Route: 048
     Dates: start: 20141226, end: 20150112

REACTIONS (2)
  - Retinal aneurysm [None]
  - Blindness unilateral [None]

NARRATIVE: CASE EVENT DATE: 20150112
